FAERS Safety Report 4370240-9 (Version None)
Quarter: 2004Q2

REPORT INFORMATION
  Report Type: 
  Country: None (occurrence: None)
  Receive Date: 20040603
  Receipt Date: 20040323
  Transmission Date: 20050107
  Serious: Yes (Other)
  Sender: FDA-Public Use
  Company Number: US-BRISTOL-MYERS SQUIBB COMPANY-12540290

PATIENT
  Age: 8 Year
  Sex: Male

DRUGS (3)
  1. ABILIFY [Suspect]
     Indication: IMPULSE-CONTROL DISORDER
     Dosage: RECEIVED 10 MG DAILY FOR SEVERAL MONTHS - 1.5 MONTHS AGO DECREASED TO 5 MG
     Route: 048
  2. ADDERALL 10 [Concomitant]
  3. CLONIDINE HCL [Concomitant]

REACTIONS (1)
  - CONVULSION [None]
